FAERS Safety Report 7475154-3 (Version None)
Quarter: 2011Q2

REPORT INFORMATION
  Report Type: 
  Country: None (occurrence: None)
  Receive Date: 20110505
  Receipt Date: 20110214
  Transmission Date: 20111010
  Serious: Yes (Death)
  Sender: FDA-Public Use
  Company Number: JP-ACCORD-008171

PATIENT
  Age: 82 Year
  Sex: Female

DRUGS (2)
  1. ETOPOSIDE [Suspect]
     Indication: SMALL CELL CARCINOMA
  2. CISPLATIN [Suspect]
     Indication: SMALL CELL CARCINOMA

REACTIONS (2)
  - OFF LABEL USE [None]
  - URETERIC CANCER METASTATIC [None]
